FAERS Safety Report 5540882-3 (Version None)
Quarter: 2007Q4

REPORT INFORMATION
  Report Type: 
  Country: None (occurrence: None)
  Receive Date: 20071129
  Receipt Date: 20070710
  Transmission Date: 20080405
  Serious: Yes (Other)
  Sender: FDA-Public Use
  Company Number: US200707002582

PATIENT
  Age: 20 Year
  Sex: Male

DRUGS (3)
  1. ZYPREXA [Suspect]
     Indication: SCHIZOPHRENIA
     Dosage: 5 MG, 2/D, ORAL
     Route: 048
  2. ATIVAN [Concomitant]
  3. KLONOPIN [Concomitant]

REACTIONS (4)
  - MUSCLE RIGIDITY [None]
  - NEUROLEPTIC MALIGNANT SYNDROME [None]
  - RHABDOMYOLYSIS [None]
  - SOCIAL AVOIDANT BEHAVIOUR [None]
